FAERS Safety Report 13079528 (Version 1)
Quarter: 2017Q1

REPORT INFORMATION
  Report Type: Spontaneous
  Country: FR (occurrence: FR)
  Receive Date: 20170103
  Receipt Date: 20170103
  Transmission Date: 20170428
  Serious: Yes (Hospitalization)
  Sender: FDA-Public Use
  Company Number: FR-ROCHE-1874036

PATIENT
  Age: 66 Year
  Sex: Male

DRUGS (11)
  1. RIVOTRIL [Suspect]
     Active Substance: CLONAZEPAM
     Indication: PRODUCT USED FOR UNKNOWN INDICATION
     Dosage: 2.5 MG/ML
     Route: 048
     Dates: end: 20161214
  2. ORELOX [Concomitant]
     Active Substance: CEFPODOXIME
     Indication: NASOPHARYNGITIS
     Route: 065
     Dates: start: 20160904, end: 20160904
  3. OGAST [Concomitant]
     Active Substance: LANSOPRAZOLE
     Dosage: 30 1/DAY
     Route: 065
  4. CARTREX [Concomitant]
     Active Substance: ACECLOFENAC
     Dosage: 2 IN THE EVENING
     Route: 065
  5. DUPHALAC (FRANCE) [Concomitant]
     Active Substance: LACTULOSE
     Indication: CONSTIPATION
     Route: 048
     Dates: start: 20161128
  6. TOPALGIC (FRANCE) [Concomitant]
     Active Substance: TRAMADOL
     Dosage: DISCONTINUED AROUND 10 OR 11/NOV/2016
     Route: 065
     Dates: start: 201611
  7. TEMERIT [Concomitant]
     Active Substance: NEBIVOLOL
     Dosage: IN MORNING
     Route: 048
     Dates: start: 201611
  8. TEGRETOL [Suspect]
     Active Substance: CARBAMAZEPINE
     Indication: RESTLESS LEGS SYNDROME
     Route: 048
     Dates: start: 20161212, end: 20161214
  9. TEGRETOL [Suspect]
     Active Substance: CARBAMAZEPINE
     Route: 048
     Dates: start: 20160830, end: 20160904
  10. APROVEL [Concomitant]
     Active Substance: IRBESARTAN
     Dosage: IN MORNING
     Route: 048
  11. LOVENOX [Concomitant]
     Active Substance: ENOXAPARIN SODIUM
     Route: 065
     Dates: start: 201611

REACTIONS (1)
  - Drug reaction with eosinophilia and systemic symptoms [Recovering/Resolving]

NARRATIVE: CASE EVENT DATE: 20161214
